FAERS Safety Report 15360361 (Version 12)
Quarter: 2019Q3

REPORT INFORMATION
  Report Type: Spontaneous
  Country: US (occurrence: US)
  Receive Date: 20180907
  Receipt Date: 20190703
  Transmission Date: 20191004
  Serious: Yes (Hospitalization)
  Sender: FDA-Public Use
  Company Number: US-PFIZER INC-2018359683

PATIENT
  Age: 60 Year
  Sex: Female
  Weight: 120 kg

DRUGS (5)
  1. CYMBALTA [Concomitant]
     Active Substance: DULOXETINE HYDROCHLORIDE
     Dosage: UNK
  2. LYRICA [Suspect]
     Active Substance: PREGABALIN
     Indication: DIABETES MELLITUS
     Dosage: 300 MG, 2X/DAY
     Route: 048
     Dates: start: 20181127
  3. LYRICA [Suspect]
     Active Substance: PREGABALIN
     Indication: MYALGIA
  4. LYRICA [Suspect]
     Active Substance: PREGABALIN
     Indication: NEURALGIA
  5. LYRICA [Suspect]
     Active Substance: PREGABALIN
     Indication: DIABETIC NEUROPATHY
     Dosage: 300 MG, 2X/DAY (TAKE 1 CAPSULE TWICE DAILY)
     Route: 048
     Dates: end: 20180823

REACTIONS (16)
  - Influenza like illness [Unknown]
  - Headache [Unknown]
  - Discomfort [Unknown]
  - Pruritus generalised [Recovered/Resolved]
  - Eye pruritus [Recovered/Resolved]
  - Agitation [Unknown]
  - Pain in extremity [Unknown]
  - Anxiety [Unknown]
  - Drug ineffective [Unknown]
  - Restlessness [Unknown]
  - Dyskinesia [Unknown]
  - Vision blurred [Unknown]
  - Withdrawal syndrome [Recovered/Resolved]
  - Feeling of body temperature change [Unknown]
  - Insomnia [Unknown]
  - Oral pruritus [Unknown]
